FAERS Safety Report 8777822 (Version 1)
Quarter: 2012Q4

REPORT INFORMATION
  Report Type: 
  Country: BR (occurrence: BR)
  Receive Date: 20120911
  Receipt Date: 20120911
  Transmission Date: 20130627
  Serious: Yes (Other)
  Sender: FDA-Public Use
  Company Number: PHHY2012BR077175

PATIENT
  Sex: Female

DRUGS (2)
  1. CALCIUM SANDOZ [Suspect]
  2. DIOVAN AMLO FIX [Suspect]

REACTIONS (3)
  - Neoplasm malignant [Recovered/Resolved]
  - Dyspepsia [Recovered/Resolved]
  - Osteopenia [Recovering/Resolving]
